FAERS Safety Report 16281040 (Version 1)
Quarter: 2019Q2

REPORT INFORMATION
  Report Type: Spontaneous
  Country: US (occurrence: US)
  Receive Date: 20190507
  Receipt Date: 20190507
  Transmission Date: 20190711
  Serious: No
  Sender: FDA-Public Use
  Company Number: US-TEVA-2019-US-1044667

PATIENT
  Sex: Female

DRUGS (1)
  1. TEVA BUDESONIDE [Suspect]
     Active Substance: BUDESONIDE
     Indication: INFLAMMATION
     Dosage: FORM STRENGTH:1 MG / 2 ML?INHALATION - SUSPENSION
     Route: 065
     Dates: start: 201903

REACTIONS (2)
  - Product odour abnormal [Unknown]
  - Product use in unapproved indication [Unknown]
